FAERS Safety Report 8612656-8 (Version None)
Quarter: 2012Q3

REPORT INFORMATION
  Report Type: 
  Country: None (occurrence: None)
  Receive Date: 20120822
  Receipt Date: 20111017
  Transmission Date: 20120928
  Serious: No
  Sender: FDA-Public Use
  Company Number: US-ASTRAZENECA-2011SE57126

PATIENT
  Age: 84 Year
  Sex: Female
  Weight: 63 kg

DRUGS (9)
  1. WARFARIN SODIUM [Concomitant]
     Indication: ANTICOAGULANT THERAPY
     Route: 048
  2. POTASSIUM [Concomitant]
     Route: 048
  3. MULTIVITAMINS CENTRUM SILVER [Concomitant]
     Route: 048
  4. DILTIAZEM [Concomitant]
     Indication: BLOOD PRESSURE
     Route: 048
  5. PREDNISONE TAB [Concomitant]
     Indication: DYSPNOEA
     Route: 048
  6. ALBUTEROL [Concomitant]
     Indication: DYSPNOEA
     Route: 055
  7. FUROSEMIDE [Concomitant]
     Route: 048
  8. SYMBICORT [Suspect]
     Indication: CHRONIC OBSTRUCTIVE PULMONARY DISEASE
     Dosage: 160/4.5 MCG TWO PUFFS TWICE IN THE MORNING, TWO PUFFS IN THE EVENING
     Route: 055
     Dates: start: 20100601
  9. SYMBICORT [Suspect]
     Indication: PULMONARY FIBROSIS
     Dosage: 160/4.5 MCG TWO PUFFS TWICE IN THE MORNING, TWO PUFFS IN THE EVENING
     Route: 055
     Dates: start: 20100601

REACTIONS (4)
  - DRY MOUTH [None]
  - COUGH [None]
  - OFF LABEL USE [None]
  - APHONIA [None]
